FAERS Safety Report 7412633-9 (Version None)
Quarter: 2011Q2

REPORT INFORMATION
  Report Type: 
  Country: None (occurrence: None)
  Receive Date: 20110405
  Receipt Date: 20110317
  Transmission Date: 20111010
  Serious: Yes (Death)
  Sender: FDA-Public Use
  Company Number: 2011P1005378

PATIENT
  Age: 70 Year
  Sex: Female

DRUGS (2)
  1. LORAZEPAM [Suspect]
     Dosage: ;PO
     Route: 048
  2. ALPRAZOLAM [Suspect]
     Dosage: ;PO
     Route: 048

REACTIONS (1)
  - COMPLETED SUICIDE [None]
